FAERS Safety Report 7453955-5 (Version None)
Quarter: 2011Q2

REPORT INFORMATION
  Report Type: 
  Country: None (occurrence: None)
  Receive Date: 20110502
  Receipt Date: 20101119
  Transmission Date: 20111010
  Serious: No
  Sender: FDA-Public Use
  Company Number: US-BAYER-2010-005953

PATIENT
  Age: 84 Year
  Sex: Female

DRUGS (2)
  1. AVELOX [Suspect]
     Indication: INFECTION
     Dosage: 400 MG, QD
     Dates: start: 20101101, end: 20101101
  2. SYNTHROID [Concomitant]
     Indication: THYROID DISORDER

REACTIONS (3)
  - BURNING SENSATION [None]
  - MUSCULOSKELETAL PAIN [None]
  - ASTHENIA [None]
